FAERS Safety Report 10965859 (Version 1)
Quarter: 2015Q1

REPORT INFORMATION
  Report Type: Spontaneous
  Country: US (occurrence: None)
  Receive Date: 20150327
  Receipt Date: 20150327
  Transmission Date: 20150721
  Serious: No
  Sender: FDA-Public Use
  Company Number: None

PATIENT
  Age: 30 Year
  Sex: Male
  Weight: 129.28 kg

DRUGS (5)
  1. HYDROCHLOROTJAZIDE [Concomitant]
  2. QUETAPHINE [Concomitant]
  3. CLONAZEPAM. [Concomitant]
     Active Substance: CLONAZEPAM
  4. DULOXETINE [Suspect]
     Active Substance: DULOXETINE
  5. RANTITIDINE [Concomitant]

REACTIONS (4)
  - Malaise [None]
  - Fall [None]
  - Nausea [None]
  - Vertigo [None]

NARRATIVE: CASE EVENT DATE: 20150220
